FAERS Safety Report 6780111 (Version 2)
Quarter: 2013Q1

REPORT INFORMATION
  Report Type: Spontaneous
  Country: AU (occurrence: None)
  Receive Date: 20080922
  Receipt Date: 20130108
  Transmission Date: 20140127
  Serious: Yes (Hospitalization)
  Sender: FDA-Public Use
  Company Number: 2008AP002203

PATIENT
  Age: 10 Year
  Sex: Female

DRUGS (3)
  1. CARBAMAZEPINE [Suspect]
     Indication: EPILEPSY
  2. PREDNISOLONE [Suspect]
     Indication: HYPERSENSITIVITY
     Dosage: 2 MG/KG; QD
  3. HUMAN IMMUNOGLOBULIN G [Suspect]
     Indication: HYPERSENSITIVITY
     Dosage: 2000 GM/KG, IV
     Route: 042

REACTIONS (22)
  - Drug reaction with eosinophilia and systemic symptoms [None]
  - Tendonitis [None]
  - Urinary tract infection [None]
  - Dyspnoea [None]
  - Tachycardia [None]
  - Staphylococcal abscess [None]
  - Pulse pressure increased [None]
  - Anticonvulsant drug level increased [None]
  - Viral infection [None]
  - Conjunctivitis [None]
  - Lymphadenitis [None]
  - Liver tenderness [None]
  - Transaminases increased [None]
  - Blood alkaline phosphatase increased [None]
  - Cytomegalovirus test positive [None]
  - Face oedema [None]
  - Lip swelling [None]
  - Stomatitis [None]
  - Skin fissures [None]
  - Beta haemolytic streptococcal infection [None]
  - Oedema peripheral [None]
  - Pain in extremity [None]
